FAERS Safety Report 6026593-9 (Version None)
Quarter: 2008Q4

REPORT INFORMATION
  Report Type: 
  Country: None (occurrence: None)
  Receive Date: 20081231
  Receipt Date: 20081222
  Transmission Date: 20090506
  Serious: Yes (Hospitalization, Other)
  Sender: FDA-Public Use
  Company Number: 2008AP003533

PATIENT
  Age: 50 Year
  Sex: Female

DRUGS (12)
  1. METFORMIN HYDROCHLORIDE [Suspect]
  2. HYDROCHLOROTHIAZIDE [Suspect]
  3. CELECOXIB [Suspect]
     Indication: ARTHRALGIA
  4. CANDESARTAN [Suspect]
  5. LEVOTHYROXINE SODIUM [Concomitant]
  6. ACETAMINOPHEN W/ CODEINE [Concomitant]
  7. ACETYLSALICYLIC ACID [Concomitant]
  8. SIMVASTATIN [Concomitant]
  9. OMEPRAZOLE [Concomitant]
  10. PREGABALIN [Concomitant]
  11. TIZANIDINE HCL [Concomitant]
  12. ARIPIPRAZOLE [Concomitant]

REACTIONS (15)
  - ASTHENIA [None]
  - BLOOD PH DECREASED [None]
  - BLOOD PRESSURE DIASTOLIC DECREASED [None]
  - DRUG INTERACTION [None]
  - DRUG TOXICITY [None]
  - ELECTROCARDIOGRAM QRS COMPLEX PROLONGED [None]
  - HAEMATEMESIS [None]
  - HAEMODIALYSIS [None]
  - LACTIC ACIDOSIS [None]
  - OCCULT BLOOD POSITIVE [None]
  - PANCREATITIS ACUTE [None]
  - RENAL FAILURE ACUTE [None]
  - SINUS TACHYCARDIA [None]
  - SOMNOLENCE [None]
  - VENTRICULAR EXTRASYSTOLES [None]
